FAERS Safety Report 9553980 (Version 1)
Quarter: 2013Q3

REPORT INFORMATION
  Report Type: Spontaneous
  Country: NL (occurrence: NL)
  Receive Date: 20130925
  Receipt Date: 20130925
  Transmission Date: 20140515
  Serious: Yes (Hospitalization)
  Sender: FDA-Public Use
  Company Number: NL-ABBVIE-13P-114-1147820-00

PATIENT
  Age: 74 Year
  Sex: Female

DRUGS (4)
  1. ADALIMUMAB [Suspect]
     Indication: NECROTISING SCLERITIS
     Route: 058
     Dates: start: 201104
  2. PREDNISONE [Concomitant]
     Indication: NECROTISING SCLERITIS
     Route: 048
     Dates: start: 2010
  3. PREDNISONE [Concomitant]
     Indication: IMMUNOSUPPRESSANT DRUG THERAPY
  4. METHOTREXATE [Concomitant]
     Indication: NECROTISING SCLERITIS
     Dates: start: 2010

REACTIONS (2)
  - Cholestasis [Recovered/Resolved]
  - Histoplasmosis disseminated [Recovered/Resolved]
